FAERS Safety Report 4674118-2 (Version None)
Quarter: 2005Q2

REPORT INFORMATION
  Report Type: 
  Country: None (occurrence: None)
  Receive Date: 20050524
  Receipt Date: 20050524
  Transmission Date: 20051028
  Serious: Yes (Hospitalization)
  Sender: FDA-Public Use
  Company Number: None

PATIENT
  Age: 68 Year
  Sex: Male
  Weight: 110 kg

DRUGS (7)
  1. DILTIAZEM [Suspect]
     Indication: HYPERTENSION
     Dosage: 360MG  QD  ORAL
     Route: 048
     Dates: start: 19960419, end: 20050521
  2. ATENOLOL [Suspect]
     Indication: HYPERTENSION
     Dosage: 75MG   QD   ORAL
     Route: 048
     Dates: start: 19960419, end: 20050521
  3. CIMETIDINE [Concomitant]
  4. ALBUTEROL [Concomitant]
  5. SIMVASTATIN [Concomitant]
  6. LISINOPRIL [Concomitant]
  7. FELODIPINE [Concomitant]

REACTIONS (4)
  - BRADYCARDIA [None]
  - DIZZINESS [None]
  - ELECTROCARDIOGRAM ABNORMAL [None]
  - SINUS BRADYCARDIA [None]
